FAERS Safety Report 6359872-6 (Version None)
Quarter: 2009Q3

REPORT INFORMATION
  Report Type: 
  Country: None (occurrence: None)
  Receive Date: 20090917
  Receipt Date: 20090911
  Transmission Date: 20100115
  Serious: Yes (Other)
  Sender: FDA-Public Use
  Company Number: D0062832A

PATIENT
  Sex: Male

DRUGS (1)
  1. LAMICTAL [Suspect]
     Dosage: 400MG PER DAY
     Route: 048

REACTIONS (5)
  - LARYNGEAL OEDEMA [None]
  - NASAL OEDEMA [None]
  - ORAL DISCOMFORT [None]
  - PARAESTHESIA ORAL [None]
  - PHARYNGEAL OEDEMA [None]
